FAERS Safety Report 24354838 (Version 1)
Quarter: 2024Q3

REPORT INFORMATION
  Report Type: Spontaneous
  Country: DE (occurrence: DE)
  Receive Date: 20240923
  Receipt Date: 20240923
  Transmission Date: 20241016
  Serious: Yes (Other)
  Sender: APELLIS PHARMACEUTICALS
  Company Number: DE-BIOVITRUM-2024-DE-012047

PATIENT

DRUGS (1)
  1. PEGCETACOPLAN [Suspect]
     Active Substance: PEGCETACOPLAN
     Indication: Paroxysmal nocturnal haemoglobinuria
     Dosage: DAILY DOSE AS INDICATED, CURRENTLY EVERY 3 DAYS
     Route: 058

REACTIONS (2)
  - Breakthrough haemolysis [Unknown]
  - Influenza [Unknown]

NARRATIVE: CASE EVENT DATE: 20240122
